FAERS Safety Report 7603199-9 (Version None)
Quarter: 2011Q3

REPORT INFORMATION
  Report Type: 
  Country: None (occurrence: None)
  Receive Date: 20110711
  Receipt Date: 20110711
  Transmission Date: 20111222
  Serious: Yes (Death)
  Sender: FDA-Public Use
  Company Number: None

PATIENT
  Sex: Female
  Weight: 68.9 kg

DRUGS (8)
  1. FOSAPREPITANT [Concomitant]
  2. LORAZEPAM [Concomitant]
  3. PALONOSETRON [Concomitant]
  4. VINBLASTINE SULFATE [Concomitant]
  5. DOXORUBICIN HCL [Suspect]
     Indication: HODGKIN'S DISEASE
     Dosage: 40 MG X1 IV
     Route: 042
     Dates: start: 20110607
  6. DACARBAZINE [Concomitant]
  7. BLEOMYCIN SULFATE [Suspect]
     Indication: HODGKIN'S DISEASE
     Dosage: 1 UNIT X1 SUBCU
     Route: 058
     Dates: start: 20110607
  8. DEXAMETHASONE [Concomitant]

REACTIONS (5)
  - PALPITATIONS [None]
  - HYPOTENSION [None]
  - CARDIO-RESPIRATORY ARREST [None]
  - ASTHENIA [None]
  - CHEST PAIN [None]
